FAERS Safety Report 9250832 (Version 1)
Quarter: 2013Q2

REPORT INFORMATION
  Report Type: Spontaneous
  Country: BE (occurrence: BE)
  Receive Date: 20130424
  Receipt Date: 20130424
  Transmission Date: 20140414
  Serious: Yes (Other)
  Sender: FDA-Public Use
  Company Number: PHHY2013BE036746

PATIENT
  Sex: 0

DRUGS (9)
  1. CICLOSPORIN [Suspect]
     Indication: IMMUNOSUPPRESSION
     Dosage: 150 MG/DAY (WEEK ZERO)
  2. CICLOSPORIN [Interacting]
     Dosage: 50 MG/DAY (WEEK FOUR)
  3. CICLOSPORIN [Interacting]
     Dosage: 75 MG/DAY (WEEK EIGHT)
  4. CICLOSPORIN [Interacting]
     Dosage: 75 MG/DAY (WEEK SIXTEEN)
  5. MYCOPHENOLATE MOFETIL [Interacting]
     Indication: IMMUNOSUPPRESSION
     Dosage: UNK UKN, UNK
  6. RIBAVIRIN [Concomitant]
     Dosage: 600 MG QD, WEEK ZERO, WEEK FOUR, WEEK EIGHT
  7. RIBAVIRIN [Concomitant]
     Dosage: 400 MG/DAY (WEEK SIXTEEN)
  8. BOCEPREVIR [Concomitant]
     Dosage: UNK UKN, UNK
  9. BOXBERGAL [Concomitant]
     Dosage: UNK UKN, UNK

REACTIONS (3)
  - Haemoglobin decreased [Unknown]
  - Drug interaction [Unknown]
  - Glomerular filtration rate decreased [Unknown]
